FAERS Safety Report 6054740-1 (Version None)
Quarter: 2009Q1

REPORT INFORMATION
  Report Type: 
  Country: None (occurrence: None)
  Receive Date: 20090128
  Receipt Date: 20090119
  Transmission Date: 20090719
  Serious: Yes (Hospitalization)
  Sender: FDA-Public Use
  Company Number: US-AMGEN-QUU329132

PATIENT
  Sex: Female

DRUGS (1)
  1. ENBREL [Suspect]
     Indication: RHEUMATOID ARTHRITIS
     Route: 058
     Dates: start: 20001117

REACTIONS (5)
  - BREECH PRESENTATION [None]
  - FATIGUE [None]
  - HEADACHE [None]
  - MALAISE [None]
  - RHINORRHOEA [None]
